FAERS Safety Report 6336307-0 (Version None)
Quarter: 2009Q3

REPORT INFORMATION
  Report Type: 
  Country: None (occurrence: None)
  Receive Date: 20090901
  Receipt Date: 20090819
  Transmission Date: 20100115
  Serious: Yes (Other)
  Sender: FDA-Public Use
  Company Number: US-PFIZER INC-2009259227

PATIENT
  Sex: Female
  Weight: 108.84 kg

DRUGS (2)
  1. CHANTIX [Suspect]
     Indication: SMOKING CESSATION THERAPY
     Dosage: 1 MG, 2X/DAY
     Dates: start: 20070401
  2. GEODON [Suspect]
     Indication: BIPOLAR DISORDER
     Dosage: UNK
     Dates: start: 20070416

REACTIONS (1)
  - MANIA [None]
